FAERS Safety Report 10706617 (Version 1)
Quarter: 2015Q1

REPORT INFORMATION
  Report Type: Spontaneous
  Country: US (occurrence: None)
  Receive Date: 20150109
  Receipt Date: 20150109
  Transmission Date: 20150721
  Serious: No
  Sender: FDA-Public Use
  Company Number: 2015-00001

PATIENT
  Age: 40 Year
  Sex: Male

DRUGS (3)
  1. ZICAM COLD REMEDY NASAL SWABS [Suspect]
     Active Substance: ZINC GLUCONATE
     Indication: NASOPHARYNGITIS
     Dosage: INSERTED NASALLY X NOS
     Dates: start: 2006, end: 2008
  2. SIMVASTATIN. [Concomitant]
     Active Substance: SIMVASTATIN
  3. ZICAM COLD REMEDY NASAL SWABS [Suspect]
     Active Substance: ZINC GLUCONATE
     Indication: PROPHYLAXIS
     Dosage: INSERTED NASALLY X NOS
     Dates: start: 2006, end: 2008

REACTIONS (1)
  - Anosmia [None]

NARRATIVE: CASE EVENT DATE: 200912
